FAERS Safety Report 8333726-8 (Version None)
Quarter: 2012Q2

REPORT INFORMATION
  Report Type: 
  Country: None (occurrence: None)
  Receive Date: 20120503
  Receipt Date: 20120503
  Transmission Date: 20120825
  Serious: Yes (Life-Threatening, Other)
  Sender: FDA-Public Use
  Company Number: None

PATIENT
  Age: 38 Year
  Sex: Female
  Weight: 54.431 kg

DRUGS (10)
  1. CELEXA [Concomitant]
  2. BENADRYL [Concomitant]
  3. XANAX [Concomitant]
  4. ZYRTEC [Concomitant]
  5. PREDNISONE [Concomitant]
  6. MELATONIN [Concomitant]
  7. LAMICTAL [Concomitant]
  8. CYMBALTA [Suspect]
     Indication: PANIC DISORDER
     Dosage: |DOSAGETEXT: 30 MG||STRENGTH: 30 MG||FREQ: QD||ROUTE: ORAL|
     Route: 048
     Dates: start: 20120324, end: 20120424
  9. CYMBALTA [Concomitant]
  10. CLARITIN [Concomitant]

REACTIONS (16)
  - INSOMNIA [None]
  - RASH GENERALISED [None]
  - DIZZINESS [None]
  - VERTIGO [None]
  - ARTHRALGIA [None]
  - PRURITUS [None]
  - NIGHTMARE [None]
  - BLOOD CALCIUM ABNORMAL [None]
  - FALL [None]
  - PARTIAL SEIZURES [None]
  - NAUSEA [None]
  - GASTROOESOPHAGEAL REFLUX DISEASE [None]
  - HEADACHE [None]
  - LIVER FUNCTION TEST ABNORMAL [None]
  - IMPAIRED WORK ABILITY [None]
  - CONTUSION [None]
